FAERS Safety Report 7776727-0 (Version None)
Quarter: 2011Q3

REPORT INFORMATION
  Report Type: 
  Country: None (occurrence: None)
  Receive Date: 20110922
  Receipt Date: 20110922
  Transmission Date: 20111222
  Serious: Yes (Hospitalization)
  Sender: FDA-Public Use
  Company Number: None

PATIENT
  Age: 69 Year
  Sex: Male

DRUGS (9)
  1. COUMADIN [Concomitant]
  2. K-TAB [Concomitant]
  3. DECADRON [Concomitant]
  4. BICITRA [Concomitant]
  5. CYANOCOBALAMIN [Concomitant]
  6. CALCITRIOL [Concomitant]
  7. QUESTRAN [Concomitant]
  8. REVLIMID [Suspect]
     Indication: MULTIPLE MYELOMA
     Dosage: 10MG QOD X21D/28D ORALLY
     Route: 048
     Dates: start: 20080301, end: 20110701
  9. ALLOPURINOL [Concomitant]

REACTIONS (4)
  - RENAL FAILURE ACUTE [None]
  - PNEUMONIA [None]
  - NEUTROPENIA [None]
  - DEEP VEIN THROMBOSIS [None]
